FAERS Safety Report 10244260 (Version 1)
Quarter: 2014Q2

REPORT INFORMATION
  Report Type: Spontaneous
  Country: FI (occurrence: None)
  Receive Date: 20140616
  Receipt Date: 20140616
  Transmission Date: 20141212
  Serious: Yes (Life-Threatening, Other)
  Sender: FDA-Public Use
  Company Number: SYM-2014-21797

PATIENT
  Age: 80 Year
  Sex: Female

DRUGS (3)
  1. DIAZEPAM [Suspect]
     Indication: PHYSICAL ASSAULT
     Dates: start: 200903, end: 20090314
  2. CHLORDIAZEPOXIDE [Suspect]
     Dates: start: 200903, end: 20090314
  3. OXAZEPAM [Suspect]
     Indication: PHYSICAL ASSAULT
     Dates: start: 200903, end: 20090314

REACTIONS (7)
  - Disorientation [None]
  - Loss of consciousness [None]
  - Poisoning [None]
  - Physical assault [None]
  - Victim of crime [None]
  - Victim of crime [None]
  - Exposure via ingestion [None]
